FAERS Safety Report 12652749 (Version 2)
Quarter: 2016Q3

REPORT INFORMATION
  Report Type: Report from Study
  Country: DE (occurrence: DE)
  Receive Date: 20160815
  Receipt Date: 20160907
  Transmission Date: 20161109
  Serious: Yes (Hospitalization)
  Sender: FDA-Public Use
  Company Number: DE-ELI_LILLY_AND_COMPANY-DE201608000266

PATIENT
  Age: 67 Year
  Sex: Male
  Weight: 67.5 kg

DRUGS (8)
  1. CYRAMZA [Suspect]
     Active Substance: RAMUCIRUMAB
     Indication: OESOPHAGEAL ADENOCARCINOMA
     Dosage: 8 MG/M2, CYCLICAL
     Route: 042
     Dates: start: 20160718, end: 20160725
  2. ACTRAPID [Concomitant]
     Active Substance: INSULIN HUMAN
     Indication: TYPE 2 DIABETES MELLITUS
     Dosage: UNK
  3. MCP [Concomitant]
     Active Substance: METOCLOPRAMIDE HYDROCHLORIDE
     Indication: ANTIEMETIC SUPPORTIVE CARE
     Dosage: UNK
     Dates: start: 20160722
  4. ASPIRIN. [Concomitant]
     Active Substance: ASPIRIN
     Indication: CORONARY ARTERY DISEASE
     Dosage: UNK
  5. INNOHEP [Concomitant]
     Active Substance: TINZAPARIN SODIUM
     Indication: ANTICOAGULANT THERAPY
     Dosage: UNK
     Dates: start: 20160713
  6. PACLITAXEL. [Suspect]
     Active Substance: PACLITAXEL
     Indication: OESOPHAGEAL ADENOCARCINOMA
     Dosage: UNK
     Dates: start: 20160718
  7. PRAVASIN [Concomitant]
     Active Substance: PRAVASTATIN SODIUM
     Indication: LIPID METABOLISM DISORDER
     Dosage: UNK
  8. METAMIZOL                          /06276702/ [Concomitant]
     Active Substance: METAMIZOLE
     Indication: PAIN
     Dosage: UNK
     Dates: start: 20160725

REACTIONS (5)
  - Febrile neutropenia [Not Recovered/Not Resolved]
  - Haemoglobin decreased [Unknown]
  - Pneumonia [Not Recovered/Not Resolved]
  - Blood glucose increased [Unknown]
  - White blood cell count decreased [Unknown]

NARRATIVE: CASE EVENT DATE: 20160729
